FAERS Safety Report 16189666 (Version 1)
Quarter: 2019Q2

REPORT INFORMATION
  Report Type: Other
  Country: GR (occurrence: GB)
  Receive Date: 20190412
  Receipt Date: 20190412
  Transmission Date: 20190711
  Serious: Yes (Hospitalization, Other)
  Sender: FDA-Public Use
  Company Number: GR-APOTEX-2019AP011346

PATIENT
  Age: 74 Year
  Sex: Female

DRUGS (5)
  1. CALCIUM [Concomitant]
     Active Substance: CALCIUM
     Indication: ROUTINE HEALTH MAINTENANCE
  2. DENOSUMAB [Suspect]
     Active Substance: DENOSUMAB
     Indication: OSTEOPOROSIS POSTMENOPAUSAL
     Dosage: UNK (DOSAGE NOT STATED)
     Route: 065
  3. CALCIUM [Concomitant]
     Active Substance: CALCIUM
     Indication: OSTEOPOROSIS POSTMENOPAUSAL
     Dosage: 1 DF, QD (DAILY CALCIUM)
     Route: 065
  4. ALENDRONIC ACID TABLETS [Suspect]
     Active Substance: ALENDRONIC ACID
     Indication: OSTEOPOROSIS POSTMENOPAUSAL
     Dosage: 70 MG, Q.WK.(70 MG/WEEK FOR 10 YEARS)
     Route: 048
  5. VITAMIN D                          /00107901/ [Concomitant]
     Active Substance: ERGOCALCIFEROL
     Indication: ROUTINE HEALTH MAINTENANCE
     Dosage: UNK (DAILY VITAMIN D SUPPLEMENTATION)
     Route: 065

REACTIONS (3)
  - Pain in extremity [Recovering/Resolving]
  - Atypical femur fracture [Recovered/Resolved]
  - Weight bearing difficulty [Recovering/Resolving]
